FAERS Safety Report 24938943 (Version 3)
Quarter: 2025Q1

REPORT INFORMATION
  Report Type: Spontaneous
  Country: IT (occurrence: IT)
  Receive Date: 20250206
  Receipt Date: 20250304
  Transmission Date: 20250409
  Serious: No
  Sender: NOVARTIS
  Company Number: None

PATIENT
  Age: 75 Year
  Sex: Female
  Weight: 66 kg

DRUGS (1)
  1. IMATINIB MESYLATE [Suspect]
     Active Substance: IMATINIB MESYLATE
     Indication: Gastrointestinal stromal tumour
     Route: 065
     Dates: start: 20230906, end: 20231012

REACTIONS (2)
  - Ventricular extrasystoles [Not Recovered/Not Resolved]
  - Oedema peripheral [Not Recovered/Not Resolved]

NARRATIVE: CASE EVENT DATE: 20230920
